FAERS Safety Report 7831823-4 (Version None)
Quarter: 2011Q4

REPORT INFORMATION
  Report Type: 
  Country: None (occurrence: None)
  Receive Date: 20111021
  Receipt Date: 20111018
  Transmission Date: 20120403
  Serious: Yes (Death, Hospitalization)
  Sender: FDA-Public Use
  Company Number: US-AMGEN-USASP2011052466

PATIENT
  Sex: Female

DRUGS (8)
  1. AMLODIPINE [Concomitant]
  2. NPLATE [Suspect]
     Indication: IDIOPATHIC THROMBOCYTOPENIC PURPURA
     Dates: start: 20110331, end: 20110414
  3. VANCOMYCIN HCL [Concomitant]
     Route: 042
  4. AMIODARONE HCL [Concomitant]
  5. CEFEPIME [Concomitant]
  6. METRONIDAZOLE [Concomitant]
  7. DIGOXIN [Concomitant]
  8. FUROSEMIDE [Concomitant]

REACTIONS (10)
  - HIP FRACTURE [None]
  - DIARRHOEA [None]
  - MALAISE [None]
  - POST PROCEDURAL INFECTION [None]
  - OEDEMA [None]
  - ANAEMIA [None]
  - RENAL FAILURE ACUTE [None]
  - CARDIAC FAILURE CONGESTIVE [None]
  - FLUID OVERLOAD [None]
  - HYPERKALAEMIA [None]
